FAERS Safety Report 26140842 (Version 3)
Quarter: 2025Q4

REPORT INFORMATION
  Report Type: Spontaneous
  Country: US (occurrence: US)
  Receive Date: 20251210
  Receipt Date: 20251224
  Transmission Date: 20260117
  Serious: Yes (Hospitalization, Other)
  Sender: PFIZER
  Company Number: US-TAKEDA-2025TUS109722

PATIENT
  Age: 31 Year
  Sex: Female

DRUGS (6)
  1. PANTOPRAZOLE [Suspect]
     Active Substance: PANTOPRAZOLE
     Indication: Prophylaxis against gastrointestinal ulcer
     Dosage: UNK
     Route: 065
  2. BUMEX [Suspect]
     Active Substance: BUMETANIDE
     Dosage: UNK
  3. AMLODIPINE [Suspect]
     Active Substance: AMLODIPINE BESYLATE
     Dosage: UNK
  4. ATOVAQUONE [Suspect]
     Active Substance: ATOVAQUONE
     Dosage: UNK
  5. CHLORTHALIDONE [Suspect]
     Active Substance: CHLORTHALIDONE
     Dosage: UNK
  6. CEFTRIAXONE [Concomitant]
     Active Substance: CEFTRIAXONE
     Indication: Skin infection
     Dosage: UNK

REACTIONS (1)
  - Generalised bullous fixed drug eruption [Recovering/Resolving]
